FAERS Safety Report 11397644 (Version 2)
Quarter: 2015Q3

REPORT INFORMATION
  Report Type: Spontaneous
  Country: US (occurrence: US)
  Receive Date: 20150819
  Receipt Date: 20150922
  Transmission Date: 20151125
  Serious: No
  Sender: FDA-Public Use
  Company Number: US-SHIRE-US201510544

PATIENT
  Age: 21 Year
  Sex: Male
  Weight: 83.9 kg

DRUGS (1)
  1. VYVANSE [Suspect]
     Active Substance: LISDEXAMFETAMINE DIMESYLATE
     Indication: ATTENTION DEFICIT/HYPERACTIVITY DISORDER
     Dosage: 50 MG, 1X/DAY:QD
     Route: 048
     Dates: start: 2015, end: 20150813

REACTIONS (5)
  - Product physical issue [None]
  - Inappropriate schedule of drug administration [Recovered/Resolved]
  - Drug effect decreased [Recovered/Resolved]
  - Product quality issue [Unknown]
  - Intentional overdose [Recovered/Resolved]

NARRATIVE: CASE EVENT DATE: 20150812
